FAERS Safety Report 9654328 (Version 2)
Quarter: 2013Q4

REPORT INFORMATION
  Report Type: Report from Study
  Country: JP (occurrence: JP)
  Receive Date: 20131029
  Receipt Date: 20131029
  Transmission Date: 20140711
  Serious: Yes (Death, Hospitalization, Other)
  Sender: FDA-Public Use
  Company Number: JP-SA-THYM-1003946

PATIENT
  Age: 60 Year
  Sex: Female
  Weight: 51 kg

DRUGS (13)
  1. THYMOGLOBULINE [Suspect]
     Indication: ACUTE GRAFT VERSUS HOST DISEASE
     Dosage: 50 MG, ONCE
     Route: 065
     Dates: start: 20111117, end: 20111117
  2. THYMOGLOBULINE [Suspect]
     Indication: ACUTE GRAFT VERSUS HOST DISEASE
     Dosage: 50 MG, ONCE
     Route: 065
     Dates: start: 20111125, end: 20111125
  3. THYMOGLOBULINE [Suspect]
     Indication: ACUTE GRAFT VERSUS HOST DISEASE
     Dosage: 50 MG, ONCE
     Route: 065
     Dates: start: 20111208, end: 20111208
  4. THYMOGLOBULINE [Suspect]
     Indication: ACUTE GRAFT VERSUS HOST DISEASE
     Dosage: 50 MG, ONCE
     Route: 065
     Dates: start: 20111215, end: 20111215
  5. TACROLIMUS [Concomitant]
     Indication: PROPHYLAXIS AGAINST GRAFT VERSUS HOST DISEASE
     Dosage: UNK
     Dates: end: 20111219
  6. METHYLPREDNISOLONE [Concomitant]
     Indication: PROPHYLAXIS AGAINST GRAFT VERSUS HOST DISEASE
     Dosage: UNK
     Dates: end: 20111219
  7. MEROPEN [Concomitant]
     Indication: INFECTION PROPHYLAXIS
     Dosage: UNK
     Dates: end: 20111219
  8. VFEND [Concomitant]
     Indication: INFECTION PROPHYLAXIS
     Dosage: UNK
     Dates: end: 20111219
  9. ZOVIRAX [Concomitant]
     Indication: INFECTION PROPHYLAXIS
     Dosage: UNK
     Dates: end: 20111220
  10. CRAVIT [Concomitant]
     Indication: INFECTION PROPHYLAXIS
     Dosage: UNK
     Dates: end: 20111220
  11. BARACLUDE [Concomitant]
     Indication: VIRAL HEPATITIS CARRIER
     Dosage: UNK
     Dates: end: 20111220
  12. BECLOMETASONE [Concomitant]
     Indication: GRAFT VERSUS HOST DISEASE
     Dosage: UNK
     Dates: end: 20111218
  13. REMICADE [Concomitant]
     Indication: GRAFT VERSUS HOST DISEASE
     Dosage: UNK
     Dates: start: 20111210, end: 20111210

REACTIONS (3)
  - Acute graft versus host disease in liver [Unknown]
  - Liver abscess [Fatal]
  - Cytomegalovirus infection [Not Recovered/Not Resolved]
